FAERS Safety Report 6510864-3 (Version None)
Quarter: 2009Q4

REPORT INFORMATION
  Report Type: 
  Country: None (occurrence: None)
  Receive Date: 20091222
  Receipt Date: 20090121
  Transmission Date: 20100525
  Serious: No
  Sender: FDA-Public Use
  Company Number: US-ASTRAZENECA-2009UW02027

PATIENT
  Sex: Female
  Weight: 49.4 kg

DRUGS (3)
  1. CRESTOR [Suspect]
     Indication: HYPERCHOLESTEROLAEMIA
     Route: 048
  2. ZOLOFT [Concomitant]
     Indication: PANIC ATTACK
  3. VITAMIN TAB [Concomitant]

REACTIONS (2)
  - ASTHENIA [None]
  - MUSCLE SPASMS [None]
